FAERS Safety Report 14189304 (Version 2)
Quarter: 2018Q1

REPORT INFORMATION
  Report Type: Spontaneous
  Country: RU (occurrence: RU)
  Receive Date: 20171115
  Receipt Date: 20180117
  Transmission Date: 20180508
  Serious: Yes (Other)
  Sender: FDA-Public Use
  Company Number: RU-ROCHE-2018541

PATIENT

DRUGS (2)
  1. METHOTREXATE. [Concomitant]
     Active Substance: METHOTREXATE
  2. ACTEMRA [Suspect]
     Active Substance: TOCILIZUMAB
     Indication: JUVENILE IDIOPATHIC ARTHRITIS
     Dosage: 8 MG / KG/ 1 TIME IN 2-4 WEEKS IN PATIENTS WITH BODY WEIGHT LESS THAN OR EQUAL TO 30 KG?12 MG / KG 1
     Route: 042
     Dates: start: 2010

REACTIONS (4)
  - Neutropenia [Unknown]
  - Disease risk factor [Unknown]
  - Drug ineffective [Unknown]
  - Intentional product misuse [Unknown]

NARRATIVE: CASE EVENT DATE: 2010
